FAERS Safety Report 9125057 (Version 1)
Quarter: 2013Q1

REPORT INFORMATION
  Report Type: Spontaneous
  Country: US (occurrence: US)
  Receive Date: 20130227
  Receipt Date: 20130227
  Transmission Date: 20140127
  Serious: Yes (Death)
  Sender: FDA-Public Use
  Company Number: US-ROCHE-1194077

PATIENT
  Age: 15 Year
  Sex: Female

DRUGS (10)
  1. CLONAZEPAM [Suspect]
     Indication: PRODUCT USED FOR UNKNOWN INDICATION
     Route: 048
  2. CLONAZEPAM [Suspect]
     Dosage: OVERDOSE
     Route: 048
  3. AMLODIPINE [Suspect]
     Indication: PRODUCT USED FOR UNKNOWN INDICATION
     Route: 048
  4. AMLODIPINE [Suspect]
     Dosage: OVERDOSE
     Route: 048
  5. TADALAFIL [Suspect]
     Indication: PRODUCT USED FOR UNKNOWN INDICATION
     Route: 048
  6. TADALAFIL [Suspect]
     Dosage: OVERDOSE
     Route: 048
  7. AZITHROMYCIN [Suspect]
     Indication: PRODUCT USED FOR UNKNOWN INDICATION
     Route: 048
  8. AZITHROMYCIN [Suspect]
     Dosage: OVERDOSE
     Route: 048
  9. ACETAMINOPHEN/DIPHENHYDRAMINE [Suspect]
     Indication: PRODUCT USED FOR UNKNOWN INDICATION
     Route: 048
  10. ACETAMINOPHEN/DIPHENHYDRAMINE [Suspect]
     Dosage: OVERDOSE
     Route: 048

REACTIONS (1)
  - Toxicity to various agents [Fatal]
